FAERS Safety Report 8074014-7 (Version None)
Quarter: 2012Q1

REPORT INFORMATION
  Report Type: 
  Country: None (occurrence: None)
  Receive Date: 20120126
  Receipt Date: 20120124
  Transmission Date: 20120608
  Serious: Yes (Death)
  Sender: FDA-Public Use
  Company Number: AU-B.I. PHARMACEUTICALS,INC./RIDGEFIELD-2011-AU-01017AU

PATIENT
  Sex: Male
  Weight: 59 kg

DRUGS (8)
  1. ZOLOFT [Concomitant]
     Dosage: 50 MG
  2. DILTIAZEM HCL [Concomitant]
     Dosage: 180 MG DAILY
  3. LIPITOR [Concomitant]
     Dosage: 40 MG
  4. SPIRACTIN [Concomitant]
     Dosage: 12.5 MG DAILY
  5. PRADAXA [Suspect]
     Indication: CEREBROVASCULAR ACCIDENT PROPHYLAXIS
     Dosage: 220 MG
     Dates: start: 20110617
  6. LASYX [Concomitant]
     Dosage: 40 MG
     Dates: start: 20110617
  7. BISOLVIN [Concomitant]
     Dosage: 5 MG DAILY
  8. PRADAXA [Suspect]
     Indication: ATRIAL FIBRILLATION

REACTIONS (1)
  - DEATH [None]
